FAERS Safety Report 9486277 (Version 1)
Quarter: 2013Q3

REPORT INFORMATION
  Report Type: Spontaneous
  Country: US (occurrence: None)
  Receive Date: 20130827
  Receipt Date: 20130827
  Transmission Date: 20140515
  Serious: Yes (Death)
  Sender: FDA-Public Use
  Company Number: 2013-378

PATIENT
  Age: 59 Year
  Sex: Female

DRUGS (1)
  1. FAZACLO (CLOZAPINE, USP) ODT (ORAL DISINTEGRATING TABLET) [Suspect]
     Route: 048
     Dates: start: 20071003, end: 20130717

REACTIONS (1)
  - Cardiac failure [None]
